FAERS Safety Report 18246788 (Version 1)
Quarter: 2020Q3

REPORT INFORMATION
  Report Type: Report from Study
  Country: AR (occurrence: AR)
  Receive Date: 20200909
  Receipt Date: 20200909
  Transmission Date: 20201103
  Serious: Yes (Other)
  Sender: FDA-Public Use
  Company Number: AR-AMGEN-ARGSL2020086067

PATIENT
  Age: 44 Year
  Sex: Female

DRUGS (1)
  1. VECTIBIX [Suspect]
     Active Substance: PANITUMUMAB
     Indication: COLORECTAL CANCER METASTATIC
     Dosage: UNK UNK, Q2WK (EVERY 14 DAYS)
     Route: 065

REACTIONS (11)
  - Stomatitis haemorrhagic [Not Recovered/Not Resolved]
  - Rash [Not Recovered/Not Resolved]
  - Stent placement [Unknown]
  - Localised infection [Not Recovered/Not Resolved]
  - Paronychia [Not Recovered/Not Resolved]
  - Contusion [Unknown]
  - Biliary catheter insertion [Unknown]
  - Impaired healing [Not Recovered/Not Resolved]
  - Pain in extremity [Not Recovered/Not Resolved]
  - Mucosal inflammation [Unknown]
  - Hirsutism [Unknown]
